FAERS Safety Report 21917870 (Version 1)
Quarter: 2023Q1

REPORT INFORMATION
  Report Type: Spontaneous
  Country: DE (occurrence: DE)
  Receive Date: 20230127
  Receipt Date: 20230127
  Transmission Date: 20230417
  Serious: Yes (Hospitalization)
  Sender: FDA-Public Use
  Company Number: DE-MYLANLABS-2023M1004350

PATIENT
  Age: 42 Year
  Sex: Male

DRUGS (1)
  1. CLOZAPINE [Suspect]
     Active Substance: CLOZAPINE
     Indication: Schizophrenia
     Dosage: 900 MILLIGRAM, ONCE A DAY
     Route: 065

REACTIONS (6)
  - Somnolence [Unknown]
  - Dry mouth [Unknown]
  - Hyponatraemia [Unknown]
  - Asthenia [Unknown]
  - Polydipsia [Unknown]
  - Toxicity to various agents [Unknown]
